FAERS Safety Report 4325112-2 (Version None)
Quarter: 2004Q1

REPORT INFORMATION
  Report Type: 
  Country: None (occurrence: None)
  Receive Date: 20040323
  Receipt Date: 20040106
  Transmission Date: 20041129
  Serious: No
  Sender: FDA-Public Use
  Company Number: USA031255409

PATIENT
  Age: 62 Year
  Sex: Male
  Weight: 76 kg

DRUGS (7)
  1. CIALIS [Suspect]
     Indication: ERECTILE DYSFUNCTION
     Dosage: 10 MG/AS NEEDED
     Dates: start: 20031224
  2. XANAX [Concomitant]
  3. VIAGRA [Concomitant]
  4. VARDENAFIL [Concomitant]
  5. OLMESARTAN MEDOXOMIL [Concomitant]
  6. VALIUM [Concomitant]
  7. ACETAMINOPHEN AND HYDROCODONE BITARTRATE [Concomitant]

REACTIONS (5)
  - ARTHRALGIA [None]
  - DRUG INEFFECTIVE [None]
  - MUSCULOSKELETAL STIFFNESS [None]
  - NASOPHARYNGITIS [None]
  - PAIN IN EXTREMITY [None]
